FAERS Safety Report 9680920 (Version 1)
Quarter: 2013Q4

REPORT INFORMATION
  Report Type: Spontaneous
  Country: US (occurrence: None)
  Receive Date: 20131108
  Receipt Date: 20131108
  Transmission Date: 20140711
  Serious: Yes (Life-Threatening, Hospitalization)
  Sender: FDA-Public Use
  Company Number: None

PATIENT
  Age: 74 Year
  Sex: Female
  Weight: 73.1 kg

DRUGS (9)
  1. CARBOPLATIN [Suspect]
     Route: 042
     Dates: start: 20130711, end: 20130711
  2. CARBOPLATIN [Suspect]
     Route: 042
     Dates: start: 20130711, end: 20130711
  3. ACETAMINOPHEN [Concomitant]
  4. DEXAMETHASONE [Concomitant]
  5. FAMOTIDINE [Concomitant]
  6. FOSAPREPITANT [Concomitant]
  7. LORAZEPAM [Concomitant]
  8. PALONOSETRON [Concomitant]
  9. SODIUM CHLORIDE [Concomitant]

REACTIONS (6)
  - Feeling abnormal [None]
  - Convulsion [None]
  - Flushing [None]
  - Chest pain [None]
  - Pruritus [None]
  - Cardio-respiratory arrest [None]
